FAERS Safety Report 4854305-0 (Version None)
Quarter: 2005Q4

REPORT INFORMATION
  Report Type: 
  Country: None (occurrence: None)
  Receive Date: 20051213
  Receipt Date: 20051129
  Transmission Date: 20060501
  Serious: Yes (Hospitalization)
  Sender: FDA-Public Use
  Company Number: 2005P1000586

PATIENT
  Age: 72 Year
  Sex: Female
  Weight: 80 kg

DRUGS (4)
  1. RETEPLASE (RETEPLASE) [Suspect]
     Indication: ACUTE MYOCARDIAL INFARCTION
     Dosage: 5 IU; 1X;IV
     Route: 042
     Dates: start: 20051030, end: 20051030
  2. ABCIXIMAB (ABCIXIMAB) [Suspect]
     Indication: ACUTE MYOCARDIAL INFARCTION
     Dosage: 9.4 ML; 1X; IV; 3.8 MGL;1X;IV
     Route: 042
     Dates: start: 20051030, end: 20051030
  3. ABCIXIMAB (ABCIXIMAB) [Suspect]
     Indication: ACUTE MYOCARDIAL INFARCTION
     Dosage: 9.4 ML; 1X; IV; 3.8 MGL;1X;IV
     Route: 042
     Dates: start: 20051030, end: 20051030
  4. ACE INHIBITOR NOS [Concomitant]

REACTIONS (4)
  - BLOOD CREATINE PHOSPHOKINASE INCREASED [None]
  - BLOOD CREATINE PHOSPHOKINASE MB INCREASED [None]
  - CONDUCTION DISORDER [None]
  - HEART RATE INCREASED [None]
